FAERS Safety Report 14261135 (Version 3)
Quarter: 2018Q3

REPORT INFORMATION
  Report Type: Other
  Country: DE (occurrence: DE)
  Receive Date: 20171207
  Receipt Date: 20180904
  Transmission Date: 20181010
  Serious: Yes (Other)
  Sender: FDA-Public Use
  Company Number: DE-MACLEODS PHARMACEUTICALS US LTD-MAC2017006468

PATIENT

DRUGS (2)
  1. THYROID HORMONES [Concomitant]
     Active Substance: UNSPECIFIED INGREDIENT
     Indication: HYPOTHYROIDISM
     Dosage: UNK, TABLET
     Route: 048
  2. MEMANTINE 10 MG TABLET [Suspect]
     Active Substance: MEMANTINE
     Indication: DEMENTIA
     Dosage: 10 MG, UNK, FILM COATED TABLETS
     Route: 048
     Dates: start: 20170906

REACTIONS (1)
  - Visual impairment [Not Recovered/Not Resolved]
